FAERS Safety Report 19447802 (Version 1)
Quarter: 2021Q2

REPORT INFORMATION
  Report Type: Spontaneous
  Country: NL (occurrence: NL)
  Receive Date: 20210622
  Receipt Date: 20210622
  Transmission Date: 20210717
  Serious: Yes (Hospitalization, Other)
  Sender: FDA-Public Use
  Company Number: NVSC2021NL133915

PATIENT
  Sex: Male
  Weight: .8 kg

DRUGS (6)
  1. PREDNISOLONE. [Concomitant]
     Active Substance: PREDNISOLONE
     Indication: FOETAL EXPOSURE DURING PREGNANCY
     Dosage: START DATE: 18 JAN 2017, (PARENTAL DOSE: 7.5 MG, QD (ORAL), FOR IMMUNOSUPRESSIVE EFFECT
     Route: 064
  2. TACROLIMUS. [Suspect]
     Active Substance: TACROLIMUS
     Indication: FOETAL EXPOSURE DURING PREGNANCY
     Dosage: START DATE: 18 JAN 2017, (PARENTAL DOSE: 2.5 MG, QD (ORAL), FOR KIDNEY TRANSPLANT /IMMUNOSUPRESSIVE
     Route: 064
  3. TENOFOVIR [Concomitant]
     Active Substance: TENOFOVIR
     Indication: FOETAL EXPOSURE DURING PREGNANCY
     Dosage: START DATE: 18 DEC 2012 (PARENTAL DOSE: 245 MG, QD) (ORAL), FOR CHRONIC HEP. B
     Route: 064
  4. ASCORBIC ACID. [Concomitant]
     Active Substance: ASCORBIC ACID
     Indication: FOETAL EXPOSURE DURING PREGNANCY
     Dosage: START DATE 06 NOV 2019 (PARENTAL DOSE: 1000 MG, QD (ORAL)) FOR PREVENTION PREGNANCY COMPLICATIONS, S
     Route: 064
  5. METOPROLOL. [Concomitant]
     Active Substance: METOPROLOL
     Indication: FOETAL EXPOSURE DURING PREGNANCY
     Dosage: (PARENTAL DOSE: 100 MG, Q12H (ORAL)) FOR HYPERTENSION
     Route: 064
  6. ACETYLSALICYLIC ACID [Concomitant]
     Active Substance: ASPIRIN
     Indication: FOETAL EXPOSURE DURING PREGNANCY
     Dosage: START DATE: 31 OCT 2019 (PARENTAL DOSE: 80 MG, QD (ORAL)) FOR AN UNKNOWN INDICATION, STOP DATE: 16 J
     Route: 064

REACTIONS (1)
  - Foetal growth restriction [Recovered/Resolved]

NARRATIVE: CASE EVENT DATE: 20191106
